FAERS Safety Report 23397133 (Version 1)
Quarter: 2024Q1

REPORT INFORMATION
  Report Type: Spontaneous
  Country: US (occurrence: US)
  Receive Date: 20240112
  Receipt Date: 20240112
  Transmission Date: 20240410
  Serious: Yes (Death, Other)
  Sender: FDA-Public Use
  Company Number: US-PFIZER INC-202400009742

PATIENT
  Age: 66 Year
  Sex: Male

DRUGS (4)
  1. LORAZEPAM [Suspect]
     Active Substance: LORAZEPAM
     Dosage: UNK, INGESTION
     Route: 048
  2. LORAZEPAM [Suspect]
     Active Substance: LORAZEPAM
     Dosage: UNK, ASPIRATION
     Route: 050
  3. ZALEPLON [Suspect]
     Active Substance: ZALEPLON
     Dosage: UNK (INGESTION)
     Route: 048
  4. ZALEPLON [Suspect]
     Active Substance: ZALEPLON
     Dosage: UNK (ASPIRATION)
     Route: 050

REACTIONS (1)
  - Completed suicide [Fatal]

NARRATIVE: CASE EVENT DATE: 20220101
